FAERS Safety Report 23946854 (Version 1)
Quarter: 2024Q2

REPORT INFORMATION
  Report Type: Spontaneous
  Country: US (occurrence: None)
  Receive Date: 20240606
  Receipt Date: 20240606
  Transmission Date: 20240716
  Serious: Yes (Hospitalization)
  Sender: FDA-Public Use
  Company Number: None

PATIENT
  Age: 85 Year
  Sex: Female

DRUGS (13)
  1. NUPLAZID [Suspect]
     Active Substance: PIMAVANSERIN TARTRATE
     Indication: Parkinson^s disease psychosis
     Dosage: 34 MG DAILY ORAL?
     Route: 048
     Dates: start: 20240420
  2. LIPITOR [Concomitant]
     Active Substance: ATORVASTATIN CALCIUM
  3. EZETIMIBE [Concomitant]
     Active Substance: EZETIMIBE
  4. CLONAZEPAM [Concomitant]
     Active Substance: CLONAZEPAM
  5. OFLOXACIN [Concomitant]
     Active Substance: OFLOXACIN
  6. Timolol opthalmic [Concomitant]
  7. DONEPEZIL [Concomitant]
     Active Substance: DONEPEZIL\DONEPEZIL HYDROCHLORIDE
  8. LATANOPROST [Concomitant]
     Active Substance: LATANOPROST
  9. VERAPAMIL [Concomitant]
     Active Substance: VERAPAMIL HYDROCHLORIDE
  10. SERTRALINE [Concomitant]
     Active Substance: SERTRALINE HYDROCHLORIDE
  11. SINEMET CR [Concomitant]
     Active Substance: CARBIDOPA\LEVODOPA
  12. HYDROCHLOROTHIAZIDE\LOSARTAN [Concomitant]
     Active Substance: HYDROCHLOROTHIAZIDE\LOSARTAN
  13. ASPIRIN [Concomitant]
     Active Substance: ASPIRIN

REACTIONS (1)
  - Transient ischaemic attack [None]

NARRATIVE: CASE EVENT DATE: 20240528
